FAERS Safety Report 7959084-6 (Version None)
Quarter: 2011Q4

REPORT INFORMATION
  Report Type: 
  Country: None (occurrence: None)
  Receive Date: 20111206
  Receipt Date: 20111206
  Transmission Date: 20120403
  Serious: Yes (Death)
  Sender: FDA-Public Use
  Company Number: None

PATIENT
  Sex: Male
  Weight: 142.42 kg

DRUGS (5)
  1. BYETTA [Suspect]
     Indication: TYPE 2 DIABETES MELLITUS
     Dosage: 10MG
     Route: 058
  2. VERAPAMIL [Concomitant]
  3. LANTUS SOLAR INSULIN [Concomitant]
  4. ULORIC [Concomitant]
  5. PRANDIN [Concomitant]

REACTIONS (3)
  - PANCREATITIS NECROTISING [None]
  - MULTI-ORGAN FAILURE [None]
  - CHOLECYSTITIS [None]
